FAERS Safety Report 9376131 (Version 1)
Quarter: 2013Q2

REPORT INFORMATION
  Report Type: Spontaneous
  Country: MX (occurrence: MX)
  Receive Date: 20130629
  Receipt Date: 20130629
  Transmission Date: 20140414
  Serious: Yes (Other)
  Sender: FDA-Public Use
  Company Number: MX-MYLANLABS-2013S1013760

PATIENT
  Age: 80 Year
  Sex: Female

DRUGS (1)
  1. AMLODIPINE [Suspect]
     Indication: HYPERTENSION
     Route: 065

REACTIONS (2)
  - Toxic skin eruption [Recovering/Resolving]
  - Photosensitivity reaction [Recovering/Resolving]
